FAERS Safety Report 10545421 (Version 2)
Quarter: 2014Q4

REPORT INFORMATION
  Report Type: Spontaneous
  Country: US (occurrence: US)
  Receive Date: 20141027
  Receipt Date: 20141106
  Transmission Date: 20150529
  Serious: Yes (Hospitalization, Other)
  Sender: FDA-Public Use
  Company Number: US-GILEAD-2014-0119698

PATIENT
  Age: 49 Year
  Sex: Female

DRUGS (2)
  1. REVATIO [Concomitant]
     Active Substance: SILDENAFIL CITRATE
  2. LETAIRIS [Suspect]
     Active Substance: AMBRISENTAN
     Indication: PRODUCT USED FOR UNKNOWN INDICATION
     Dosage: 5 MG, QD
     Route: 065
     Dates: start: 20141016

REACTIONS (5)
  - Haemoptysis [Unknown]
  - Haematemesis [Unknown]
  - Mental status changes [Unknown]
  - Thrombosis [Unknown]
  - Amnesia [Unknown]

NARRATIVE: CASE EVENT DATE: 20141017
